FAERS Safety Report 18851440 (Version 1)
Quarter: 2021Q1

REPORT INFORMATION
  Report Type: Spontaneous
  Country: US (occurrence: US)
  Receive Date: 20210205
  Receipt Date: 20210205
  Transmission Date: 20210420
  Serious: Yes (Death, Other)
  Sender: FDA-Public Use
  Company Number: NVSC2021US021937

PATIENT
  Sex: Female

DRUGS (2)
  1. MEKINIST [Suspect]
     Active Substance: TRAMETINIB DIMETHYL SULFOXIDE
     Indication: CHOLANGIOCARCINOMA
     Dosage: 1 DF, QD
     Route: 048
     Dates: start: 202012
  2. TAFINLAR [Suspect]
     Active Substance: DABRAFENIB MESYLATE
     Indication: CHOLANGIOCARCINOMA
     Dosage: 150 MG, BID
     Route: 048
     Dates: start: 202012

REACTIONS (2)
  - Death [Fatal]
  - Product use in unapproved indication [Unknown]
